FAERS Safety Report 9773910 (Version 2)
Quarter: 2014Q1

REPORT INFORMATION
  Report Type: Spontaneous
  Country: US (occurrence: US)
  Receive Date: 20131220
  Receipt Date: 20140312
  Transmission Date: 20141002
  Serious: No
  Sender: FDA-Public Use
  Company Number: US-009507513-1312USA002965

PATIENT
  Age: 31 Year
  Sex: Female
  Weight: 65.76 kg

DRUGS (2)
  1. NUVARING [Suspect]
     Indication: CONTRACEPTION
     Dosage: 3 WEEKS IN/ONE WEEK OUT
     Route: 067
     Dates: start: 201211
  2. ADDERALL TABLETS [Concomitant]
     Dosage: UNK
     Route: 048

REACTIONS (5)
  - Menorrhagia [Recovering/Resolving]
  - Device expulsion [Unknown]
  - Incorrect drug administration duration [Unknown]
  - Product colour issue [Unknown]
  - Product quality issue [Unknown]
